FAERS Safety Report 5286227-8 (Version None)
Quarter: 2007Q1

REPORT INFORMATION
  Report Type: 
  Country: None (occurrence: None)
  Receive Date: 20070116
  Receipt Date: 20061204
  Transmission Date: 20070707
  Serious: No
  Sender: FDA-Public Use
  Company Number: 2006SP004252

PATIENT
  Age: 93 Year
  Sex: Female
  Weight: 50.8029 kg

DRUGS (3)
  1. LUNESTA [Suspect]
     Indication: INSOMNIA
     Dosage: 2 MG;1X;ORAL
     Route: 048
     Dates: start: 20061101, end: 20061101
  2. AMLODIPINE [Concomitant]
  3. GLYCERYL TRINITRATE [Concomitant]

REACTIONS (1)
  - SOMNOLENCE [None]
